FAERS Safety Report 9455228 (Version 2)
Quarter: 2013Q3

REPORT INFORMATION
  Report Type: Spontaneous
  Country: US (occurrence: US)
  Receive Date: 20130813
  Receipt Date: 20130904
  Transmission Date: 20140515
  Serious: Yes (Hospitalization)
  Sender: FDA-Public Use
  Company Number: US-GENZYME-FABR-1003498

PATIENT
  Age: 74 Year
  Sex: Female
  Weight: 57.14 kg

DRUGS (13)
  1. FABRAZYME [Suspect]
     Indication: FABRY^S DISEASE
     Dosage: 1.05 MG/KG, Q2W
     Route: 042
     Dates: start: 201207
  2. LEVOXYL [Concomitant]
     Indication: HYPOTHYROIDISM
     Dosage: 88 MCG, QD (EVERY NIGHT)
     Route: 065
  3. LIPITOR [Concomitant]
     Indication: HYPERLIPIDAEMIA
     Dosage: 20 MG, QD
     Route: 065
  4. COUMADIN [Concomitant]
     Indication: CARDIAC PACEMAKER INSERTION
     Dosage: 7.5 MG, QD
     Route: 065
  5. VITAMIN D [Concomitant]
     Indication: SUPPLEMENTATION THERAPY
     Dosage: 1500 U, QD
     Route: 065
  6. ASPIRIN [Concomitant]
     Indication: CARDIAC PACEMAKER INSERTION
     Dosage: 325 MG, QD
     Route: 065
  7. CITALOPRAM [Concomitant]
     Indication: DEPRESSION
     Dosage: 10 MG, QD
     Route: 065
  8. METFORMIN [Concomitant]
     Indication: DIABETES MELLITUS
     Dosage: 500 MG, BID
     Route: 065
  9. SITAGLIPTIN [Concomitant]
     Indication: DIABETES MELLITUS
     Dosage: 50 MG, BID
     Route: 065
  10. TOPROL XL [Concomitant]
     Indication: CARDIAC FAILURE CONGESTIVE
     Dosage: 25 MG, QD (EVERY NIGHT)
     Route: 065
  11. VITAMIN D3 [Concomitant]
     Indication: PRODUCT USED FOR UNKNOWN INDICATION
     Dosage: 1000 U, UNK
     Route: 065
  12. INSULIN [Concomitant]
     Indication: DIABETES MELLITUS
     Dosage: 8 U, QD (9 AM)
     Route: 058
  13. HUMALOG [Concomitant]
     Indication: PRODUCT USED FOR UNKNOWN INDICATION
     Dosage: 3 U, TID
     Route: 058

REACTIONS (1)
  - Transient ischaemic attack [Recovered/Resolved]
